FAERS Safety Report 6690872-2 (Version None)
Quarter: 2010Q2

REPORT INFORMATION
  Report Type: 
  Country: None (occurrence: None)
  Receive Date: 20100421
  Receipt Date: 20100408
  Transmission Date: 20101027
  Serious: Yes (Other)
  Sender: FDA-Public Use
  Company Number: IL-PFIZER INC-2010045614

PATIENT
  Age: 30 Year
  Sex: Male

DRUGS (8)
  1. SERTRALINE HCL [Suspect]
     Indication: MAJOR DEPRESSION
     Dosage: 100 MG, UNK
  2. SERTRALINE HCL [Suspect]
     Indication: PANIC ATTACK
  3. SERTRALINE HCL [Suspect]
     Indication: ANXIETY
  4. REBOXETINE [Suspect]
     Dosage: 4 MG, UNK
  5. REBOXETINE [Suspect]
     Dosage: 8 MG, UNK
  6. LIOTHYRONINE SODIUM [Suspect]
     Indication: MAJOR DEPRESSION
     Dosage: 50 MG, UNK
  7. LIOTHYRONINE SODIUM [Suspect]
     Indication: PANIC ATTACK
  8. LIOTHYRONINE SODIUM [Suspect]
     Indication: ANXIETY

REACTIONS (6)
  - ANXIETY [None]
  - BRUXISM [None]
  - CHEST DISCOMFORT [None]
  - IRRITABILITY [None]
  - RESTLESSNESS [None]
  - TENSION [None]
